FAERS Safety Report 17598021 (Version 5)
Quarter: 2020Q4

REPORT INFORMATION
  Report Type: Spontaneous
  Country: US (occurrence: US)
  Receive Date: 20200330
  Receipt Date: 20201207
  Transmission Date: 20210113
  Serious: No
  Sender: FDA-Public Use
  Company Number: US-PFIZER INC-2020126544

PATIENT
  Age: 65 Year
  Sex: Female

DRUGS (4)
  1. ESTRING [Suspect]
     Active Substance: ESTRADIOL
     Indication: DISCOMFORT
     Dosage: 2 MG, (7.5MCG/24 HOUR) EVERY 3 MONTHS ^UNTIL BECOMING SYMPTOMATIC EVEN IF PRIOR TO 3 MONTHS
     Route: 067
     Dates: start: 20200403
  2. ESTRING [Suspect]
     Active Substance: ESTRADIOL
     Indication: HORMONE LEVEL ABNORMAL
  3. ESTRING [Suspect]
     Active Substance: ESTRADIOL
     Indication: DYSPAREUNIA
  4. ESTRING [Suspect]
     Active Substance: ESTRADIOL
     Indication: MENOPAUSE

REACTIONS (6)
  - Pruritus [Unknown]
  - Burning sensation [Unknown]
  - Frustration tolerance decreased [Unknown]
  - Stress [Unknown]
  - Therapeutic product effect incomplete [Unknown]
  - Tooth fracture [Unknown]
